FAERS Safety Report 7521227-6 (Version None)
Quarter: 2011Q2

REPORT INFORMATION
  Report Type: 
  Country: None (occurrence: None)
  Receive Date: 20110603
  Receipt Date: 20101210
  Transmission Date: 20111010
  Serious: Yes (Other)
  Sender: FDA-Public Use
  Company Number: DE-BAYER-2010-003910

PATIENT
  Age: 29 Year
  Sex: Female
  Weight: 96 kg

DRUGS (1)
  1. PRIMOVIST [Suspect]
     Dosage: 10 ML, ONCE
     Route: 042

REACTIONS (2)
  - ANGIOEDEMA [None]
  - ERYTHEMA [None]
